FAERS Safety Report 13607079 (Version 4)
Quarter: 2017Q4

REPORT INFORMATION
  Report Type: Spontaneous
  Country: TR (occurrence: TR)
  Receive Date: 20170602
  Receipt Date: 20171229
  Transmission Date: 20180320
  Serious: Yes (Death, Life-Threatening, Hospitalization, Other)
  Sender: FDA-Public Use
  Company Number: TR-ACCORD-052070

PATIENT
  Age: 54 Year
  Sex: Male

DRUGS (8)
  1. TACROLIMUS. [Suspect]
     Active Substance: TACROLIMUS
     Indication: IMMUNOSUPPRESSION
  2. PREDNISOLONE. [Suspect]
     Active Substance: PREDNISOLONE
     Indication: IMMUNOSUPPRESSION
  3. ANTITHYMOCYTE IMMUNOGLOBULIN [Suspect]
     Active Substance: THYMOCYTE IMMUNE GLOBULIN NOS
     Indication: IMMUNOSUPPRESSANT DRUG THERAPY
     Dosage: INITIATED INTRAOPERATIVELY?AT A DOSE OF 2.5 MG/KG PER DAY
  4. SIROLIMUS. [Concomitant]
     Active Substance: SIROLIMUS
  5. PYRIMETHAMINE/SULFADOXINE [Concomitant]
     Indication: PROPHYLAXIS
  6. MYCOPHENOLIC ACID. [Suspect]
     Active Substance: MYCOPHENOLIC ACID
     Indication: IMMUNOSUPPRESSION
  7. NYSTATIN/NYSTATIN/LIPOSOME [Concomitant]
     Indication: PROPHYLAXIS
     Route: 048
  8. VALACICLOVIR [Concomitant]
     Active Substance: VALACYCLOVIR HYDROCHLORIDE
     Indication: ANTIVIRAL PROPHYLAXIS
     Route: 048

REACTIONS (3)
  - Squamous cell carcinoma [Fatal]
  - Lymphoproliferative disorder [Fatal]
  - Aspergillus infection [Fatal]
